FAERS Safety Report 5862305-7 (Version None)
Quarter: 2008Q3

REPORT INFORMATION
  Report Type: 
  Country: None (occurrence: None)
  Receive Date: 20080826
  Receipt Date: 20080811
  Transmission Date: 20090109
  Serious: Yes (Life-Threatening, Hospitalization, Disabling, Other)
  Sender: FDA-Public Use
  Company Number: STI-2006-00667

PATIENT
  Age: 80 Year
  Sex: Male

DRUGS (8)
  1. ERYTHROMYCIN [Suspect]
  2. SIMVASTATIN [Suspect]
     Dosage: 20 MG (20MG, 1 IN 1 DAYS)
     Route: 048
     Dates: start: 20050401, end: 20051121
  3. BUMETANIDE (BUMETANIDE) (2 MG) [Concomitant]
  4. CARDICOR (BISOPROLOL FUMARATE) ( 1.25 MG) [Concomitant]
  5. DIGOXIN (DIGOXIN) (62.5 UG) [Concomitant]
  6. LANSOPRAZOLE (LANSOPRAZOLE) (30 MG) [Concomitant]
  7. TRAMADOL HCL [Concomitant]
  8. WARFARIN (WARFARIN) (2 MG) [Concomitant]

REACTIONS (2)
  - DRUG INTERACTION [None]
  - RHABDOMYOLYSIS [None]
